FAERS Safety Report 9270446 (Version 1)
Quarter: 2013Q2

REPORT INFORMATION
  Report Type: Other
  Country: SI (occurrence: SI)
  Receive Date: 20130503
  Receipt Date: 20130503
  Transmission Date: 20140414
  Serious: Yes (Other)
  Sender: FDA-Public Use
  Company Number: SI-WATSON-2013-07613

PATIENT
  Age: 48 Year
  Sex: Female

DRUGS (5)
  1. CARBOPLATIN (UNKNOWN) [Suspect]
     Indication: OVARIAN CANCER
     Dosage: 500 MG, UNKNOWN
     Route: 042
     Dates: start: 20130402
  2. MEDROL                             /00049601/ [Concomitant]
     Indication: PRODUCT USED FOR UNKNOWN INDICATION
     Dosage: 1 DF, UNK
     Route: 065
  3. CONTROLOC                          /01263201/ [Concomitant]
     Indication: PRODUCT USED FOR UNKNOWN INDICATION
     Dosage: 1 UNK, UNK
     Route: 065
  4. GRANISETRON [Concomitant]
     Indication: PRODUCT USED FOR UNKNOWN INDICATION
     Dosage: 1 MG, UNK
     Route: 065
  5. PACLITAXIN [Concomitant]
     Indication: PRODUCT USED FOR UNKNOWN INDICATION
     Dosage: 300 MG, UNK
     Route: 065

REACTIONS (2)
  - Dyspnoea [Recovered/Resolved]
  - Urticaria [Recovered/Resolved]
